FAERS Safety Report 9442875 (Version 4)
Quarter: 2014Q2

REPORT INFORMATION
  Report Type: Report from Study
  Country: CA (occurrence: CA)
  Receive Date: 20130806
  Receipt Date: 20140507
  Transmission Date: 20141212
  Serious: Yes (Hospitalization, Other)
  Sender: FDA-Public Use
  Company Number: CA-ROCHE-1192813

PATIENT
  Age: 76 Year
  Sex: Female
  Weight: 73 kg

DRUGS (13)
  1. ACTEMRA [Suspect]
     Indication: RHEUMATOID ARTHRITIS
     Route: 042
     Dates: start: 20111117
  2. ACTEMRA [Suspect]
     Route: 042
     Dates: start: 20120412
  3. ACTEMRA [Suspect]
     Route: 042
     Dates: start: 20130401
  4. ACTEMRA [Suspect]
     Route: 042
     Dates: start: 20130429
  5. ACTEMRA [Suspect]
     Route: 042
     Dates: start: 20140108, end: 20140416
  6. COVERSYL [Concomitant]
  7. ACEBUTOLOL [Concomitant]
  8. AMLODIPINE [Concomitant]
  9. PLAVIX [Concomitant]
  10. PANTOPRAZOLE [Concomitant]
  11. CRESTOR [Concomitant]
  12. PREDNISONE [Concomitant]
  13. OMEGA-3 [Concomitant]

REACTIONS (7)
  - Infection [Unknown]
  - Cholelithiasis [Unknown]
  - Pancreatitis [Not Recovered/Not Resolved]
  - Angina pectoris [Unknown]
  - White blood cell count decreased [Not Recovered/Not Resolved]
  - Nasopharyngitis [Not Recovered/Not Resolved]
  - Infection [Unknown]
